FAERS Safety Report 20043451 (Version 2)
Quarter: 2021Q4

REPORT INFORMATION
  Report Type: Spontaneous
  Country: US (occurrence: US)
  Receive Date: 20211108
  Receipt Date: 20211209
  Transmission Date: 20220303
  Serious: No
  Sender: FDA-Public Use
  Company Number: US-BAYER-2021A241127

PATIENT
  Age: 28 Year
  Sex: Female

DRUGS (1)
  1. MIRENA [Suspect]
     Active Substance: LEVONORGESTREL
     Dosage: 20?G/DAY
     Route: 015
     Dates: start: 20211028, end: 20211028

REACTIONS (3)
  - Post procedural discomfort [None]
  - Complication of device insertion [None]
  - Procedural anxiety [None]

NARRATIVE: CASE EVENT DATE: 20211028
